FAERS Safety Report 15306865 (Version 1)
Quarter: 2018Q3

REPORT INFORMATION
  Report Type: Spontaneous
  Country: US (occurrence: US)
  Receive Date: 20180822
  Receipt Date: 20180822
  Transmission Date: 20181010
  Serious: No
  Sender: FDA-Public Use
  Company Number: US-MYLANLABS-2018M1062032

PATIENT
  Sex: Female

DRUGS (1)
  1. ESTRADIOL TRANSDERMAL SYSTEM [Suspect]
     Active Substance: ESTRADIOL
     Indication: MENOPAUSE
     Dosage: UNK, TWICE WEEKLY
     Route: 062
     Dates: start: 201712

REACTIONS (3)
  - Hot flush [Not Recovered/Not Resolved]
  - Nervousness [Not Recovered/Not Resolved]
  - Product adhesion issue [Unknown]
